FAERS Safety Report 4639943-2 (Version None)
Quarter: 2005Q2

REPORT INFORMATION
  Report Type: 
  Country: None (occurrence: None)
  Receive Date: 20050415
  Receipt Date: 20050330
  Transmission Date: 20051028
  Serious: Yes (Life-Threatening, Hospitalization)
  Sender: FDA-Public Use
  Company Number: DE_050315532

PATIENT
  Age: 43 Year
  Sex: Female

DRUGS (2)
  1. ZYPREXA [Suspect]
     Indication: DELUSION
     Dosage: 10 MG DAY
  2. AKINETON [Concomitant]

REACTIONS (6)
  - BLOOD CREATINE PHOSPHOKINASE INCREASED [None]
  - C-REACTIVE PROTEIN INCREASED [None]
  - PYREXIA [None]
  - SOMNOLENCE [None]
  - TRANSAMINASES INCREASED [None]
  - TREMOR [None]
